FAERS Safety Report 6055564-1 (Version None)
Quarter: 2009Q1

REPORT INFORMATION
  Report Type: 
  Country: None (occurrence: None)
  Receive Date: 20090128
  Receipt Date: 20090123
  Transmission Date: 20090719
  Serious: Yes (Hospitalization)
  Sender: FDA-Public Use
  Company Number: B0555963A

PATIENT
  Sex: Male
  Weight: 57 kg

DRUGS (2)
  1. AUGMENTIN '125' [Suspect]
     Indication: TONSILLITIS
     Dosage: 875MG TWICE PER DAY
     Route: 048
     Dates: start: 20081227
  2. AEROSOL [Concomitant]
     Indication: TONSILLITIS
     Route: 065

REACTIONS (1)
  - MYOCARDITIS [None]
